FAERS Safety Report 11510755 (Version 2)
Quarter: 2016Q1

REPORT INFORMATION
  Report Type: Spontaneous
  Country: GB (occurrence: GB)
  Receive Date: 20150915
  Receipt Date: 20160212
  Transmission Date: 20160525
  Serious: Yes (Other)
  Sender: FDA-Public Use
  Company Number: GB-JNJFOC-20150904918

PATIENT
  Age: 53 Year
  Sex: Male

DRUGS (3)
  1. FOLIC ACID. [Concomitant]
     Active Substance: FOLIC ACID
     Route: 065
  2. INFLIXIMAB, RECOMBINANT [Suspect]
     Active Substance: INFLIXIMAB
     Indication: PSORIASIS
     Route: 042
     Dates: start: 20150309
  3. METHOTREXATE [Concomitant]
     Active Substance: METHOTREXATE
     Dosage: 7.5
     Route: 065

REACTIONS (4)
  - Lymphomatoid papulosis [Not Recovered/Not Resolved]
  - Mycosis fungoides [Not Recovered/Not Resolved]
  - Skin lesion [Unknown]
  - Lymphoma cutis [Unknown]

NARRATIVE: CASE EVENT DATE: 20150625
